FAERS Safety Report 15799233 (Version 2)
Quarter: 2019Q1

REPORT INFORMATION
  Report Type: Spontaneous
  Country: BR (occurrence: BR)
  Receive Date: 20190108
  Receipt Date: 20190116
  Transmission Date: 20190417
  Serious: Yes (Hospitalization)
  Sender: FDA-Public Use
  Company Number: BR-B.I. PHARMACEUTICALS,INC./RIDGEFIELD-2019-BI-000706

PATIENT
  Age: 78 Year
  Sex: Male
  Weight: 73 kg

DRUGS (4)
  1. MICARDIS [Suspect]
     Active Substance: TELMISARTAN
     Indication: HYPERTENSION
     Route: 048
     Dates: start: 2001, end: 2016
  2. MICARDIS [Suspect]
     Active Substance: TELMISARTAN
     Route: 048
     Dates: start: 20190104, end: 20190104
  3. DEXLANSOPRAZOL [Concomitant]
     Indication: GASTRITIS
     Route: 048
  4. MICARDIS [Suspect]
     Active Substance: TELMISARTAN
     Route: 048
     Dates: start: 2016, end: 20190103

REACTIONS (2)
  - Benign renal neoplasm [Recovered/Resolved]
  - Product dispensing error [Recovered/Resolved]

NARRATIVE: CASE EVENT DATE: 201712
